FAERS Safety Report 8759646 (Version 1)
Quarter: 2012Q4

REPORT INFORMATION
  Report Type: 
  Country: IT (occurrence: IT)
  Receive Date: 20120829
  Receipt Date: 20120829
  Transmission Date: 20130627
  Serious: Yes (Other)
  Sender: FDA-Public Use
  Company Number: IT-ELI_LILLY_AND_COMPANY-IT201208003633

PATIENT
  Age: 34 Year
  Sex: Female

DRUGS (1)
  1. HUMALOG LISPRO [Suspect]
     Dosage: UNK

REACTIONS (8)
  - Blood glucose increased [Unknown]
  - Impaired healing [Unknown]
  - Ulcer [Unknown]
  - Hypoglycaemia [Unknown]
  - High density lipoprotein decreased [Unknown]
  - Hypertension [Not Recovered/Not Resolved]
  - Glycosylated haemoglobin increased [Not Recovered/Not Resolved]
  - Blood glucose increased [Not Recovered/Not Resolved]
